FAERS Safety Report 23699846 (Version 1)
Quarter: 2024Q2

REPORT INFORMATION
  Report Type: Spontaneous
  Country: US (occurrence: US)
  Receive Date: 20240403
  Receipt Date: 20240403
  Transmission Date: 20240716
  Serious: Yes (Other)
  Sender: FDA-Public Use
  Company Number: US-ABBVIE-5701477

PATIENT
  Sex: Female

DRUGS (1)
  1. REFRESH P.M. [Suspect]
     Active Substance: MINERAL OIL\PETROLATUM
     Indication: Eye irritation
     Dosage: UNKNOWN?FORM STRENGTH- MINERAL OIL 425MG/ML;WHITE PETROLATUM 573MG/ML PF
     Route: 047

REACTIONS (3)
  - Neoplasm malignant [Unknown]
  - Eye irritation [Unknown]
  - Off label use [Unknown]
